FAERS Safety Report 18223278 (Version 1)
Quarter: 2020Q3

REPORT INFORMATION
  Report Type: Spontaneous
  Country: US (occurrence: US)
  Receive Date: 20200902
  Receipt Date: 20200902
  Transmission Date: 20201103
  Serious: No
  Sender: FDA-Public Use
  Company Number: US-SUN PHARMACEUTICAL INDUSTRIES LTD-2019R1-222807

PATIENT
  Age: 39 Year
  Sex: Female

DRUGS (1)
  1. BICALUTAMIDE. [Suspect]
     Active Substance: BICALUTAMIDE
     Indication: ENDOMETRIOSIS
     Dosage: UNK
     Route: 065
     Dates: start: 2014

REACTIONS (2)
  - Nausea [Unknown]
  - Migraine [Unknown]
